FAERS Safety Report 4712740-5 (Version None)
Quarter: 2005Q3

REPORT INFORMATION
  Report Type: 
  Country: None (occurrence: None)
  Receive Date: 20050701
  Receipt Date: 20050411
  Transmission Date: 20060218
  Serious: Yes (Death)
  Sender: FDA-Public Use
  Company Number: 2005042070

PATIENT
  Age: 28 Year
  Sex: Male

DRUGS (4)
  1. ZOLOFT [Suspect]
     Indication: ANXIETY
     Dosage: 100 MG (100 MG, 1 IN 1 D), ORAL
     Route: 048
     Dates: start: 20050127, end: 20050217
  2. ZOLOFT [Suspect]
     Indication: DISEASE RECURRENCE
     Dosage: 100 MG (100 MG, 1 IN 1 D), ORAL
     Route: 048
     Dates: start: 20050127, end: 20050217
  3. ZOLOFT [Suspect]
     Indication: MAJOR DEPRESSION
     Dosage: 100 MG (100 MG, 1 IN 1 D), ORAL
     Route: 048
     Dates: start: 20050127, end: 20050217
  4. CLONAZEPAM [Concomitant]

REACTIONS (1)
  - COMPLETED SUICIDE [None]
